FAERS Safety Report 15845205 (Version 2)
Quarter: 2019Q1

REPORT INFORMATION
  Report Type: Spontaneous
  Country: HR (occurrence: HR)
  Receive Date: 20190119
  Receipt Date: 20190212
  Transmission Date: 20190417
  Serious: Yes (Life-Threatening, Hospitalization, Other)
  Sender: FDA-Public Use
  Company Number: HR-ACCORD-102212

PATIENT
  Age: 40 Year
  Sex: Male

DRUGS (7)
  1. ATROPINE. [Suspect]
     Active Substance: ATROPINE
     Indication: PSYCHOTIC SYMPTOM
  2. DIAZEPAM. [Suspect]
     Active Substance: DIAZEPAM
     Indication: PSYCHOTIC SYMPTOM
     Dosage: 30 MG/D
  3. CLOZAPINE. [Suspect]
     Active Substance: CLOZAPINE
     Indication: PSYCHOTIC SYMPTOM
     Dosage: 350 MG A DAY
  4. CAFFEINE/CAFFEINE CITRATE [Suspect]
     Active Substance: CAFFEINE CITRATE
  5. NICOTINE. [Suspect]
     Active Substance: NICOTINE
  6. PROPOFOL. [Suspect]
     Active Substance: PROPOFOL
     Indication: PSYCHOTIC SYMPTOM
  7. SUXAMETHONIUM [Suspect]
     Active Substance: SUCCINYLCHOLINE
     Indication: PSYCHOTIC SYMPTOM

REACTIONS (3)
  - Stress cardiomyopathy [Recovered/Resolved]
  - Abdominal pain upper [Unknown]
  - Tachycardia [Recovered/Resolved]
